FAERS Safety Report 11538346 (Version 1)
Quarter: 2015Q3

REPORT INFORMATION
  Report Type: Spontaneous
  Country: US (occurrence: US)
  Receive Date: 20150922
  Receipt Date: 20150922
  Transmission Date: 20151125
  Serious: Yes (Hospitalization)
  Sender: FDA-Public Use
  Company Number: US-BAXTER-2015BAX050589

PATIENT
  Sex: Male

DRUGS (1)
  1. 0.9% SODIUM CHLORIDE INJECTION [Suspect]
     Active Substance: SODIUM CHLORIDE
     Indication: HAEMODIALYSIS
     Dosage: 1 BAG PER DAY
     Route: 010

REACTIONS (4)
  - Hernia [Recovering/Resolving]
  - Renal transplant failure [Recovering/Resolving]
  - Urinary tract inflammation [Recovering/Resolving]
  - Malaise [Recovering/Resolving]
